FAERS Safety Report 25386370 (Version 1)
Quarter: 2025Q2

REPORT INFORMATION
  Report Type: Spontaneous
  Country: SA (occurrence: SA)
  Receive Date: 20250602
  Receipt Date: 20250602
  Transmission Date: 20250717
  Serious: Yes (Hospitalization, Disabling, Other)
  Sender: GILEAD
  Company Number: SA-GILEAD-2025-0714885

PATIENT
  Sex: Male

DRUGS (1)
  1. YESCARTA [Suspect]
     Active Substance: AXICABTAGENE CILOLEUCEL
     Indication: Diffuse large B-cell lymphoma
     Route: 065

REACTIONS (4)
  - Gastrointestinal perforation [Unknown]
  - Pneumoperitoneum [Recovered/Resolved]
  - Cytokine release syndrome [Unknown]
  - Febrile neutropenia [Unknown]

NARRATIVE: CASE EVENT DATE: 20250527
